FAERS Safety Report 9879866 (Version 1)
Quarter: 2014Q1

REPORT INFORMATION
  Report Type: Spontaneous
  Country: US (occurrence: US)
  Receive Date: 20140206
  Receipt Date: 20140206
  Transmission Date: 20141002
  Serious: Yes (Other)
  Sender: FDA-Public Use
  Company Number: US-JNJFOC-20140202347

PATIENT
  Age: 47 Year
  Sex: Male
  Weight: 68.03 kg

DRUGS (11)
  1. IBUPROFEN [Suspect]
     Indication: PRODUCT USED FOR UNKNOWN INDICATION
     Route: 065
  2. LYRICA [Suspect]
     Indication: LONG THORACIC NERVE PALSY
     Route: 048
  3. LYRICA [Suspect]
     Indication: WINGED SCAPULA
     Route: 048
  4. LYRICA [Suspect]
     Indication: JOINT INJURY
     Route: 048
  5. LYRICA [Suspect]
     Indication: JOINT DISLOCATION
     Route: 048
  6. METHADONE [Suspect]
     Indication: PRODUCT USED FOR UNKNOWN INDICATION
     Route: 065
  7. XANAX [Concomitant]
     Indication: PRODUCT USED FOR UNKNOWN INDICATION
     Route: 065
  8. LISINOPRIL [Concomitant]
     Indication: PRODUCT USED FOR UNKNOWN INDICATION
     Route: 065
  9. OXYCODONE [Concomitant]
     Indication: PRODUCT USED FOR UNKNOWN INDICATION
     Route: 065
  10. CYMBALTA [Concomitant]
     Indication: PRODUCT USED FOR UNKNOWN INDICATION
     Route: 065
  11. ANTI HYPERTENSIVE MEDICATION [Concomitant]
     Indication: HYPERTENSION
     Route: 065

REACTIONS (6)
  - Neuralgia [Unknown]
  - Depression [Unknown]
  - Impaired driving ability [Unknown]
  - Chest pain [Unknown]
  - Pain [Unknown]
  - Off label use [Unknown]
